FAERS Safety Report 5374265-6 (Version None)
Quarter: 2007Q2

REPORT INFORMATION
  Report Type: 
  Country: None (occurrence: None)
  Receive Date: 20070629
  Receipt Date: 20070410
  Transmission Date: 20071010
  Serious: Yes (Hospitalization, Disabling)
  Sender: FDA-Public Use
  Company Number: AT-ROCHE-307541

PATIENT
  Age: 75 Year
  Sex: Male

DRUGS (5)
  1. INTERFERON ALFA-2A [Suspect]
     Indication: MALIGNANT MELANOMA
     Route: 058
  2. PLACEBO [Suspect]
     Indication: MALIGNANT MELANOMA
     Route: 048
  3. THROMBO ASS [Suspect]
     Indication: DRUG USE FOR UNKNOWN INDICATION
     Route: 048
     Dates: start: 20010414, end: 20010623
  4. ACERCOMP MITE [Concomitant]
     Route: 048
  5. TRENTAL [Concomitant]
     Route: 048
     Dates: start: 20010420

REACTIONS (3)
  - COLITIS [None]
  - GLAUCOMA [None]
  - RETINAL ARTERY OCCLUSION [None]
